FAERS Safety Report 5739328-1 (Version None)
Quarter: 2008Q2

REPORT INFORMATION
  Report Type: 
  Country: None (occurrence: None)
  Receive Date: 20080512
  Receipt Date: 20070814
  Transmission Date: 20081010
  Serious: Yes (Other)
  Sender: FDA-Public Use
  Company Number: 39876

PATIENT
  Age: 61 Year
  Sex: Female
  Weight: 73.9363 kg

DRUGS (1)
  1. PAMIDRONATE DISODIUM [Suspect]
     Indication: OSTEOPOROSIS
     Dosage: 90 MG INTRAVENOUS INFUSION OVE
     Route: 042
     Dates: start: 20070205, end: 20070615

REACTIONS (2)
  - FATIGUE [None]
  - PAIN [None]
